FAERS Safety Report 15203983 (Version 2)
Quarter: 2018Q3

REPORT INFORMATION
  Report Type: Spontaneous
  Country: DE (occurrence: DE)
  Receive Date: 20180726
  Receipt Date: 20180813
  Transmission Date: 20181010
  Serious: Yes (Hospitalization, Other)
  Sender: FDA-Public Use
  Company Number: DE-ASTRAZENECA-2018SE94840

PATIENT
  Sex: Female

DRUGS (2)
  1. TRIMIPRAMINE [Suspect]
     Active Substance: TRIMIPRAMINE
     Indication: PRODUCT USED FOR UNKNOWN INDICATION
     Dosage: UNK
     Route: 065
  2. OMEPRAZOL 1A PHARMA [Suspect]
     Active Substance: OMEPRAZOLE
     Indication: PRODUCT USED FOR UNKNOWN INDICATION
     Dosage: NON AZ, 1A PHARMA
     Route: 048

REACTIONS (5)
  - Dizziness [Unknown]
  - Gastritis [Unknown]
  - Weight decreased [Unknown]
  - Helicobacter infection [Unknown]
  - General physical health deterioration [Unknown]
